FAERS Safety Report 13696650 (Version 4)
Quarter: 2017Q3

REPORT INFORMATION
  Report Type: Report from Study
  Country: None (occurrence: US)
  Receive Date: 20170628
  Receipt Date: 20170912
  Transmission Date: 20171127
  Serious: Yes (Hospitalization, Other)
  Sender: FDA-Public Use
  Company Number: US-ABBVIE-17K-163-1946593-00

PATIENT
  Sex: Female
  Weight: 113.5 kg

DRUGS (9)
  1. HUMIRA [Suspect]
     Active Substance: ADALIMUMAB
     Route: 058
     Dates: start: 201405, end: 201701
  2. HUMIRA [Suspect]
     Active Substance: ADALIMUMAB
     Route: 058
     Dates: start: 201705
  3. HEPARIN [Concomitant]
     Active Substance: HEPARIN SODIUM
     Indication: THROMBOSIS PROPHYLAXIS
  4. WELCHOL [Concomitant]
     Active Substance: COLESEVELAM HYDROCHLORIDE
     Indication: PRODUCT USED FOR UNKNOWN INDICATION
  5. WELLBUTRIN [Concomitant]
     Active Substance: BUPROPION HYDROCHLORIDE
     Indication: PRODUCT USED FOR UNKNOWN INDICATION
  6. HUMIRA [Suspect]
     Active Substance: ADALIMUMAB
     Route: 058
  7. PROZAC [Concomitant]
     Active Substance: FLUOXETINE HYDROCHLORIDE
     Indication: PRODUCT USED FOR UNKNOWN INDICATION
  8. HUMIRA [Suspect]
     Active Substance: ADALIMUMAB
     Indication: CROHN^S DISEASE
     Route: 058
     Dates: start: 2006, end: 201410
  9. DICLOFENAC [Suspect]
     Active Substance: DICLOFENAC
     Indication: PAIN
     Route: 065

REACTIONS (16)
  - Crohn^s disease [Recovered/Resolved]
  - Duodenal stenosis [Unknown]
  - Chest discomfort [Recovering/Resolving]
  - Upper respiratory tract infection [Recovered/Resolved]
  - Drug level below therapeutic [Not Recovered/Not Resolved]
  - Abdominal distension [Not Recovered/Not Resolved]
  - Lower respiratory tract infection [Recovering/Resolving]
  - Flatulence [Not Recovered/Not Resolved]
  - Bile output increased [Recovered/Resolved]
  - Drug effect decreased [Not Recovered/Not Resolved]
  - Gastric stenosis [Not Recovered/Not Resolved]
  - Fat tissue increased [Recovered/Resolved]
  - Drug specific antibody present [Unknown]
  - Pneumonia [Recovered/Resolved]
  - Pain [Not Recovered/Not Resolved]
  - Intentional product misuse [Unknown]

NARRATIVE: CASE EVENT DATE: 2017
